FAERS Safety Report 5471040-9 (Version None)
Quarter: 2007Q3

REPORT INFORMATION
  Report Type: 
  Country: None (occurrence: None)
  Receive Date: 20070928
  Receipt Date: 20070924
  Transmission Date: 20080115
  Serious: Yes (Hospitalization)
  Sender: FDA-Public Use
  Company Number: B0488981A

PATIENT
  Age: 63 Year
  Sex: Male

DRUGS (13)
  1. ZOVIRAX [Suspect]
     Indication: MUCOSAL ULCERATION
     Dosage: 325MG PER DAY
     Route: 042
     Dates: start: 20070906, end: 20070909
  2. CALCICHEW [Concomitant]
     Dosage: 1500MG PER DAY
     Route: 048
     Dates: start: 20070827, end: 20070909
  3. LINATIL [Concomitant]
     Dosage: 20MG PER DAY
     Route: 048
     Dates: start: 20070827
  4. UNKNOWN DRUG [Concomitant]
     Dosage: 60MG PER DAY
     Route: 048
     Dates: start: 20070827, end: 20070909
  5. VITAMIN B COMPLEX + VITAMIN C [Concomitant]
     Route: 048
     Dates: start: 20070827
  6. FUNGIZONE [Concomitant]
     Route: 048
     Dates: start: 20070829, end: 20070907
  7. NEUPOGEN [Concomitant]
     Route: 058
     Dates: start: 20070902, end: 20070910
  8. MERONEM [Concomitant]
     Route: 042
     Dates: start: 20070907
  9. PANTOPRAZOLE SODIUM [Concomitant]
     Route: 042
  10. DIFLUCAN [Concomitant]
     Dosage: 200MG ALTERNATE DAYS
     Route: 042
     Dates: start: 20070906
  11. MELPHALAN [Concomitant]
     Indication: STEM CELL TRANSPLANT
     Dates: start: 20070829
  12. CHEMOTHERAPY [Concomitant]
  13. OPIOIDS [Concomitant]

REACTIONS (4)
  - CONFUSIONAL STATE [None]
  - DEPRESSED LEVEL OF CONSCIOUSNESS [None]
  - FLUID RETENTION [None]
  - PAIN [None]
